FAERS Safety Report 4589707-3 (Version None)
Quarter: 2005Q1

REPORT INFORMATION
  Report Type: 
  Country: None (occurrence: None)
  Receive Date: 20050217
  Receipt Date: 20050204
  Transmission Date: 20050727
  Serious: Yes (Disabling)
  Sender: FDA-Public Use
  Company Number: 2005UW02089

PATIENT
  Age: 59 Year
  Sex: Female

DRUGS (7)
  1. OXEZE [Suspect]
     Indication: ASTHMA
     Dosage: 1 PUFF BID IH
     Route: 055
     Dates: start: 19990701
  2. PULMICORT [Suspect]
     Indication: ASTHMA
     Dosage: 200 UG BID IH
     Route: 055
     Dates: start: 19990701
  3. BRICANYL [Concomitant]
  4. DIDROCAL [Concomitant]
  5. PARET [Concomitant]
  6. PREMARIN [Concomitant]
  7. PROVERA [Concomitant]

REACTIONS (5)
  - ARTHRITIS [None]
  - CHONDROCALCINOSIS [None]
  - MUSCLE SPASMS [None]
  - MUSCULAR WEAKNESS [None]
  - POLYMYALGIA RHEUMATICA [None]
